FAERS Safety Report 7058512-0 (Version None)
Quarter: 2010Q4

REPORT INFORMATION
  Report Type: 
  Country: None (occurrence: None)
  Receive Date: 20101022
  Receipt Date: 20101015
  Transmission Date: 20110411
  Serious: Yes (Hospitalization)
  Sender: FDA-Public Use
  Company Number: DE-WYE-H18243810

PATIENT
  Age: 85 Year
  Sex: Female
  Weight: 63.5 kg

DRUGS (13)
  1. PANTOPRAZOLE SODIUM [Suspect]
     Indication: PROPHYLAXIS AGAINST GASTROINTESTINAL ULCER
     Route: 048
     Dates: start: 20100706
  2. FERRO SANOL [Concomitant]
     Indication: IRON DEFICIENCY ANAEMIA
     Dosage: UNKNOWN
     Route: 048
  3. CALCICHEW-D3 [Concomitant]
     Indication: CALCIUM DEFICIENCY
     Route: 048
     Dates: start: 20100620, end: 20100726
  4. KALINOR RETARD [Concomitant]
     Indication: HYPOKALAEMIA
     Route: 048
     Dates: start: 20100706, end: 20100726
  5. BERLOSIN [Concomitant]
     Indication: PROCEDURAL PAIN
     Route: 048
     Dates: start: 20100618, end: 20100810
  6. LACTULOSE [Concomitant]
     Indication: CONSTIPATION
     Route: 048
     Dates: start: 20100706, end: 20100723
  7. IMBUN [Concomitant]
     Indication: PROCEDURAL PAIN
     Route: 048
     Dates: start: 20100706, end: 20100810
  8. SIMVASTATIN [Concomitant]
     Indication: DYSLIPIDAEMIA
     Route: 048
     Dates: start: 20000101, end: 20100810
  9. EMBOLEX [Concomitant]
     Dosage: 3000 IU EVERY 1 SEC
     Route: 058
     Dates: start: 20100706, end: 20100726
  10. XIPAMIDE [Concomitant]
     Indication: HYPERTENSION
     Route: 048
     Dates: end: 20100810
  11. METOHEXAL [Concomitant]
     Indication: HYPERTENSION
     Route: 048
     Dates: end: 20100810
  12. CIPRO [Interacting]
     Indication: C-REACTIVE PROTEIN INCREASED
     Route: 048
     Dates: start: 20100709, end: 20100726
  13. PARACETAMOL [Concomitant]
     Indication: PROCEDURAL PAIN
     Route: 048
     Dates: start: 20100706, end: 20100726

REACTIONS (4)
  - CLOSTRIDIUM DIFFICILE COLITIS [None]
  - DEHYDRATION [None]
  - DIET REFUSAL [None]
  - DRUG INTERACTION [None]
